FAERS Safety Report 8167211-3 (Version None)
Quarter: 2012Q1

REPORT INFORMATION
  Report Type: 
  Country: None (occurrence: None)
  Receive Date: 20120103
  Receipt Date: 20111102
  Transmission Date: 20120608
  Serious: Yes (Other)
  Sender: FDA-Public Use
  Company Number: AE-2011-003011

PATIENT
  Age: 56 Year
  Sex: Female
  Weight: 78.0187 kg

DRUGS (5)
  1. INCIVEK [Suspect]
     Dosage: 2250 MG (750 MG, 3 IN 1 D), ORAL
     Route: 048
     Dates: start: 20110916
  2. PEGASYS [Concomitant]
  3. RIBAVIRIN [Concomitant]
  4. METHADONE HCL [Concomitant]
  5. ONDANSETRON [Concomitant]

REACTIONS (3)
  - ANAEMIA [None]
  - PNEUMONIA [None]
  - IMMUNE SYSTEM DISORDER [None]
